FAERS Safety Report 7219434-5 (Version None)
Quarter: 2011Q1

REPORT INFORMATION
  Report Type: 
  Country: None (occurrence: None)
  Receive Date: 20110111
  Receipt Date: 20101221
  Transmission Date: 20110831
  Serious: Yes (Hospitalization)
  Sender: FDA-Public Use
  Company Number: GB-JNJFOC-20110102254

PATIENT
  Sex: Male

DRUGS (5)
  1. PARACETAMOL [Suspect]
     Route: 015
  2. AMOXICILLIN [Suspect]
     Indication: DRUG EXPOSURE DURING PREGNANCY
     Route: 015
  3. COCODAMOL [Suspect]
     Indication: DRUG EXPOSURE DURING PREGNANCY
     Route: 015
  4. PARACETAMOL [Suspect]
     Indication: DRUG EXPOSURE DURING PREGNANCY
     Route: 015
  5. ERYTHROMYCIN [Suspect]
     Indication: DRUG EXPOSURE DURING PREGNANCY
     Route: 015

REACTIONS (3)
  - NEONATAL DISORDER [None]
  - CAESAREAN SECTION [None]
  - DRUG EXPOSURE DURING PREGNANCY [None]
